FAERS Safety Report 4746675-9 (Version None)
Quarter: 2005Q3

REPORT INFORMATION
  Report Type: 
  Country: None (occurrence: None)
  Receive Date: 20050815
  Receipt Date: 20050805
  Transmission Date: 20060218
  Serious: Yes (Hospitalization, Other)
  Sender: FDA-Public Use
  Company Number: 2005112461

PATIENT
  Age: 43 Year
  Sex: Male
  Weight: 84.369 kg

DRUGS (4)
  1. SINEQUAN [Suspect]
     Indication: ILL-DEFINED DISORDER
     Dosage: 400 MG (500 MG, 1 IN 1 D)
     Dates: start: 20040101
  2. CLOZARIL [Suspect]
     Indication: HALLUCINATION
     Dosage: (400 MG, 1 IN  1D)
  3. GLUCOPHAGE [Concomitant]
  4. ANTIDEPRESSANTS (ANTIDEPRESSANTS) [Concomitant]

REACTIONS (7)
  - DIZZINESS [None]
  - DRUG WITHDRAWAL SYNDROME [None]
  - DYSARTHRIA [None]
  - FALL [None]
  - GENERAL PHYSICAL HEALTH DETERIORATION [None]
  - SOMNOLENCE [None]
  - WRONG DRUG ADMINISTERED [None]
